FAERS Safety Report 9374662 (Version 2)
Quarter: 2013Q3

REPORT INFORMATION
  Report Type: Spontaneous
  Country: US (occurrence: US)
  Receive Date: 20130628
  Receipt Date: 20130709
  Transmission Date: 20140515
  Serious: Yes (Other)
  Sender: FDA-Public Use
  Company Number: CHPA2013US010355

PATIENT
  Sex: Female

DRUGS (2)
  1. MAALOX ANTACID/ANTIGAS MAX QDTABS ASST [Suspect]
     Indication: HIATUS HERNIA
     Dosage: 2 DF, A COUPLE TIMES DAILY AS NEEDED
     Route: 048
  2. MAALOX ANTACID/ANTIGAS MAX QDTABS ASST [Suspect]
     Indication: GASTROOESOPHAGEAL REFLUX DISEASE

REACTIONS (3)
  - Bladder prolapse [Recovered/Resolved]
  - Therapeutic response unexpected [Unknown]
  - Off label use [Unknown]
